FAERS Safety Report 8362094 (Version 2)
Quarter: 2013Q1

REPORT INFORMATION
  Report Type: Spontaneous
  Country: AU (occurrence: AU)
  Receive Date: 20120130
  Receipt Date: 20130322
  Transmission Date: 20140127
  Serious: Yes (Hospitalization)
  Sender: FDA-Public Use
  Company Number: AU-JNJFOC-20120108725

PATIENT
  Age: 48 Year
  Sex: Female

DRUGS (2)
  1. PARACETAMOL [Suspect]
     Route: 065
  2. PARACETAMOL [Suspect]
     Indication: PRODUCT USED FOR UNKNOWN INDICATION
     Route: 065

REACTIONS (4)
  - Acute hepatic failure [Recovering/Resolving]
  - Overdose [Recovering/Resolving]
  - Toxicity to various agents [Recovering/Resolving]
  - Liver transplant [None]
